FAERS Safety Report 4690640-7 (Version None)
Quarter: 2005Q2

REPORT INFORMATION
  Report Type: 
  Country: None (occurrence: None)
  Receive Date: 20050615
  Receipt Date: 20050525
  Transmission Date: 20051028
  Serious: Yes (Hospitalization)
  Sender: FDA-Public Use
  Company Number: 2005-01726

PATIENT
  Age: 13 Year
  Sex: Male
  Weight: 49.5 kg

DRUGS (2)
  1. FORTAZ [Suspect]
     Indication: URINARY TRACT INFECTION
     Route: 042
     Dates: start: 20050414
  2. DITROPAN XL [Concomitant]
     Dosage: 15MG PER DAY
     Route: 048
     Dates: start: 20050216

REACTIONS (4)
  - ERYTHEMA [None]
  - HYPERSENSITIVITY [None]
  - SWELLING [None]
  - URTICARIA [None]
